FAERS Safety Report 9441923 (Version 2)
Quarter: 2013Q3

REPORT INFORMATION
  Report Type: Spontaneous
  Country: CA (occurrence: None)
  Receive Date: 20130801
  Receipt Date: 20130801
  Transmission Date: 20140515
  Serious: Yes (Hospitalization)
  Sender: FDA-Public Use
  Company Number: 20130336

PATIENT
  Age: 38 Year
  Sex: Female

DRUGS (8)
  1. VENOFER [Suspect]
     Indication: IRON DEFICIENCY ANAEMIA
     Dosage: 500 MG IN NSS OVER 4 1/2 HRS.
     Dates: start: 20130709, end: 20130709
  2. VENOFER [Suspect]
     Indication: RENAL FAILURE CHRONIC
     Dosage: 500 MG IN NSS OVER 4 1/2 HRS.
     Dates: start: 20130709, end: 20130709
  3. AZATHIOPRINE [Concomitant]
  4. PREDNISONE [Concomitant]
  5. METOCLOPRAMIDE [Concomitant]
  6. DOMPERIDONE [Concomitant]
  7. INSULIN ASPART [Suspect]
     Indication: DIABETES MELLITUS
  8. INSULIN GLARGINE (LANTUS) [Suspect]
     Indication: DIABETES MELLITUS

REACTIONS (1)
  - Hypoglycaemia [None]
